FAERS Safety Report 6621665-X (Version None)
Quarter: 2010Q1

REPORT INFORMATION
  Report Type: 
  Country: None (occurrence: None)
  Receive Date: 20100223
  Receipt Date: 20100119
  Transmission Date: 20100710
  Serious: No
  Sender: FDA-Public Use
  Company Number: 005165

PATIENT
  Sex: Female
  Weight: 53 kg

DRUGS (6)
  1. CIMZIA [Suspect]
     Indication: CROHN'S DISEASE
     Dosage: SUBCUTANEOUS
     Route: 058
     Dates: start: 20090201
  2. ENTOCORT EC [Concomitant]
  3. MESALAMINE [Concomitant]
  4. LISINOPRIL [Concomitant]
  5. WELLBUTRIN [Concomitant]
  6. PREMPRO [Concomitant]

REACTIONS (2)
  - CROHN'S DISEASE [None]
  - DIVERTICULUM [None]
